FAERS Safety Report 5175700-9 (Version None)
Quarter: 2006Q4

REPORT INFORMATION
  Report Type: 
  Country: None (occurrence: None)
  Receive Date: 20061215
  Receipt Date: 20060322
  Transmission Date: 20070319
  Serious: Yes (Death, Hospitalization)
  Sender: FDA-Public Use
  Company Number: PHEH2006US03804

PATIENT
  Age: 18 Year
  Sex: Female

DRUGS (3)
  1. EXJADE [Suspect]
     Indication: BLOOD IRON INCREASED
     Dosage: 1250 MG, QD
     Dates: start: 20060302, end: 20060315
  2. EXJADE [Suspect]
     Dosage: 625 MG, QD
     Route: 048
     Dates: start: 20060401
  3. EXJADE [Suspect]
     Route: 048
     Dates: start: 20060901

REACTIONS (9)
  - BURNING SENSATION [None]
  - CEREBRAL HYPOPERFUSION [None]
  - CEREBROVASCULAR ACCIDENT [None]
  - PRURITUS [None]
  - RASH [None]
  - RASH GENERALISED [None]
  - SERUM FERRITIN INCREASED [None]
  - SICKLE CELL ANAEMIA WITH CRISIS [None]
  - TREATMENT NONCOMPLIANCE [None]
